FAERS Safety Report 16902442 (Version 1)
Quarter: 2019Q4

REPORT INFORMATION
  Report Type: Spontaneous
  Country: FR (occurrence: FR)
  Receive Date: 20191010
  Receipt Date: 20191010
  Transmission Date: 20200122
  Serious: Yes (Hospitalization)
  Sender: FDA-Public Use
  Company Number: FR-ACCORD-156905

PATIENT
  Age: 76 Year
  Sex: Female

DRUGS (8)
  1. SPIRONOLACTONE. [Concomitant]
     Active Substance: SPIRONOLACTONE
  2. BISOPROLOL [Concomitant]
     Active Substance: BISOPROLOL
  3. DIFFU K [Concomitant]
     Active Substance: POTASSIUM CHLORIDE
  4. FUROSEMIDE. [Suspect]
     Active Substance: FUROSEMIDE
     Indication: HYPERTENSION
     Route: 048
  5. ELIQUIS [Suspect]
     Active Substance: APIXABAN
     Indication: ATRIAL FIBRILLATION
     Route: 048
     Dates: start: 20190625, end: 20190821
  6. COUMADINE [Suspect]
     Active Substance: WARFARIN SODIUM
     Indication: ATRIAL FIBRILLATION
     Dosage: STRENGTH: 2 MG, SCORED TABLET
     Route: 048
     Dates: start: 20190821, end: 20190904
  7. LYSANXIA [Concomitant]
     Active Substance: PRAZEPAM
  8. MOPRAL [Concomitant]
     Active Substance: OMEPRAZOLE

REACTIONS (2)
  - Vascular purpura [Not Recovered/Not Resolved]
  - Petechiae [Not Recovered/Not Resolved]

NARRATIVE: CASE EVENT DATE: 20190820
